FAERS Safety Report 7928116-3 (Version None)
Quarter: 2011Q4

REPORT INFORMATION
  Report Type: 
  Country: None (occurrence: None)
  Receive Date: 20111118
  Receipt Date: 20111109
  Transmission Date: 20120403
  Serious: Yes (Hospitalization)
  Sender: FDA-Public Use
  Company Number: US-BAYER-2011-043368

PATIENT
  Age: 49 Year
  Sex: Female
  Weight: 61 kg

DRUGS (20)
  1. YASMIN [Suspect]
     Indication: CONTRACEPTION
     Dosage: UNK
     Dates: start: 20080501, end: 20080601
  2. YASMIN [Suspect]
     Indication: PREMENSTRUAL SYNDROME
  3. TOPAMAX [Concomitant]
     Indication: HEADACHE
     Dosage: UNK
     Route: 048
     Dates: start: 20000101
  4. SINGULAIR [Concomitant]
     Indication: MULTIPLE ALLERGIES
     Dosage: UNK
     Route: 048
     Dates: start: 20080101
  5. ASPIRIN [Concomitant]
     Dosage: UNK
     Route: 048
     Dates: start: 20080101
  6. VITAMIN B COMPLEX CAP [Concomitant]
     Dosage: UNK
     Route: 048
  7. BENAZEPRIL HYDROCHLORIDE [Concomitant]
     Indication: HYPERTENSION
     Dosage: UNK
     Route: 048
     Dates: start: 20000101
  8. NAPROXEN SODIUM W/PSEUDOEPHEDRINE HCL [Concomitant]
     Dosage: UNK
     Route: 048
     Dates: start: 20080101
  9. AMLODIPINE [Concomitant]
     Dosage: UNK
     Route: 048
     Dates: start: 20000101
  10. PRISTIQ [Concomitant]
     Indication: DEPRESSION
     Dosage: UNK
     Dates: start: 20080901, end: 20090901
  11. IBUPROFEN [Concomitant]
     Dosage: UNK
     Route: 048
     Dates: start: 20080101
  12. HYDROCHLOROTHIAZID [Concomitant]
     Indication: HYPERTENSION
     Dosage: UNK
     Route: 048
     Dates: start: 20000101
  13. CALCIUM [Concomitant]
     Dosage: UNK
     Route: 048
  14. MULTI-VITAMINS [Concomitant]
     Dosage: UNK
  15. YAZ [Suspect]
     Indication: CONTRACEPTION
     Dosage: UNK
     Dates: start: 20080201, end: 20090801
  16. YAZ [Suspect]
     Indication: PREMENSTRUAL SYNDROME
  17. YAZ [Suspect]
  18. YASMIN [Suspect]
  19. TOPIRAMATE [Concomitant]
     Indication: HEADACHE
     Dosage: UNK
     Route: 048
     Dates: start: 20000101
  20. GUANTACINE [Concomitant]
     Indication: HYPERTENSION
     Dosage: UNK
     Route: 048
     Dates: start: 20080101, end: 20090101

REACTIONS (5)
  - DEEP VEIN THROMBOSIS [None]
  - ANXIETY [None]
  - PAIN [None]
  - ANHEDONIA [None]
  - EMOTIONAL DISTRESS [None]
